FAERS Safety Report 14893422 (Version 1)
Quarter: 2018Q2

REPORT INFORMATION
  Report Type: Spontaneous
  Country: FR (occurrence: FR)
  Receive Date: 20180514
  Receipt Date: 20180514
  Transmission Date: 20180711
  Serious: Yes (Death, Hospitalization, Other)
  Sender: FDA-Public Use
  Company Number: FR-PFIZER INC-2018192123

PATIENT
  Age: 51 Year
  Sex: Male

DRUGS (12)
  1. MACROGOL 4000 [Concomitant]
     Active Substance: POLYETHYLENE GLYCOL 4000
     Dosage: 10 G, UNK (2 SACHET 8 H)
     Route: 048
  2. BIPROFENID [Concomitant]
     Active Substance: KETOPROFEN
     Dosage: 3 DF, 1X/DAY (1 TAB EVERY 8 HOURS, 1 TAB 18H)
  3. PRIMPERAN [Concomitant]
     Active Substance: METOCLOPRAMIDE HYDROCHLORIDE
     Dosage: 1 DF, UNK (1 TAB, 18 H; 1 TAB 12H, 1 TAB 18H)
     Route: 048
  4. CARBOPLATIN. [Suspect]
     Active Substance: CARBOPLATIN
     Indication: LUNG NEOPLASM MALIGNANT
     Dosage: UNK
     Dates: end: 20171011
  5. PACLITAXEL. [Suspect]
     Active Substance: PACLITAXEL
     Indication: LUNG NEOPLASM MALIGNANT
  6. PANTOPRAZOLE [Concomitant]
     Active Substance: PANTOPRAZOLE
     Dosage: 20 MG, UNK (1 TABLET 20 MG; 18H)
     Route: 048
  7. ACTISKENAN [Concomitant]
     Active Substance: MORPHINE SULFATE
     Dosage: 120 MG, 1X/DAY (20MG, EVERY 4 HOURS)
     Route: 048
  8. SKENAN [Concomitant]
     Active Substance: MORPHINE SULFATE
     Dosage: 3 DF, 1X/DAY (1 CAPSULE 30 MG, EVERY 8 HOURS, 1 CAPSULE
     Route: 048
  9. DOLIPRANE [Concomitant]
     Active Substance: ACETAMINOPHEN
     Indication: PAIN
     Dosage: 4 G, 1X/DAY (1G EVERY 6 HOURS)
     Route: 048
  10. ZOMETA [Concomitant]
     Active Substance: ZOLEDRONIC ACID
     Dosage: 1 DF (1 INJECTION), MONTHLY
  11. FENTANYL. [Concomitant]
     Active Substance: FENTANYL
     Dosage: 100 UG, EVERY 3 DAYS
  12. IMOVANE [Concomitant]
     Active Substance: ZOPICLONE
     Dosage: 1 DF, UNK (1 TAB, 22H)
     Route: 048

REACTIONS (6)
  - Cholestasis [Fatal]
  - Gamma-glutamyltransferase increased [Fatal]
  - Vomiting [Fatal]
  - Blood alkaline phosphatase increased [Fatal]
  - General physical health deterioration [Fatal]
  - Neoplasm progression [Fatal]

NARRATIVE: CASE EVENT DATE: 20171011
